FAERS Safety Report 11805061 (Version 1)
Quarter: 2015Q4

REPORT INFORMATION
  Report Type: Spontaneous
  Country: GB (occurrence: GB)
  Receive Date: 20151205
  Receipt Date: 20151205
  Transmission Date: 20160305
  Serious: Yes (Hospitalization, Other)
  Sender: FDA-Public Use
  Company Number: PHFR2015GB009052

PATIENT
  Age: 59 Year
  Sex: Male

DRUGS (3)
  1. EVEROLIMUS [Suspect]
     Active Substance: EVEROLIMUS
     Dosage: 5 MG, QD
     Route: 065
     Dates: start: 201405
  2. PAZOPANIB [Concomitant]
     Active Substance: PAZOPANIB
     Indication: CLEAR CELL RENAL CELL CARCINOMA
     Dosage: 800 MG, QD
     Route: 065
     Dates: start: 20110726
  3. EVEROLIMUS [Suspect]
     Active Substance: EVEROLIMUS
     Indication: CLEAR CELL RENAL CELL CARCINOMA
     Dosage: UNK
     Route: 065
     Dates: start: 20140404

REACTIONS (9)
  - Mucosal inflammation [Unknown]
  - Tumour necrosis [Unknown]
  - Cough [Unknown]
  - Dyspnoea exertional [Unknown]
  - Lung consolidation [Unknown]
  - Rash erythematous [Unknown]
  - Chills [Unknown]
  - Pyrexia [Unknown]
  - Bronchial disorder [Unknown]

NARRATIVE: CASE EVENT DATE: 201405
